FAERS Safety Report 5648129-4 (Version None)
Quarter: 2008Q1

REPORT INFORMATION
  Report Type: 
  Country: None (occurrence: None)
  Receive Date: 20080304
  Receipt Date: 20080222
  Transmission Date: 20080703
  Serious: Yes (Hospitalization)
  Sender: FDA-Public Use
  Company Number: US-JNJFOC-20080207097

PATIENT
  Age: 59 Year
  Sex: Male

DRUGS (4)
  1. ACETAMINOPHEN [Suspect]
  2. ACETAMINOPHEN [Suspect]
     Indication: NASOPHARYNGITIS
  3. AMOXICILLIN [Suspect]
     Indication: NASOPHARYNGITIS
  4. SHOSEIRYU-TO [Suspect]
     Indication: NASOPHARYNGITIS

REACTIONS (1)
  - EOSINOPHILIC PNEUMONIA [None]
